FAERS Safety Report 17073429 (Version 2)
Quarter: 2020Q1

REPORT INFORMATION
  Report Type: Spontaneous
  Country: US (occurrence: US)
  Receive Date: 20191126
  Receipt Date: 20200129
  Transmission Date: 20200409
  Serious: Yes (Life-Threatening, Hospitalization, Other)
  Sender: FDA-Public Use
  Company Number: US-AUROBINDO-AUR-APL-2019-073226

PATIENT
  Age: 60 Year
  Sex: Male

DRUGS (9)
  1. CLONAZEPAM. [Concomitant]
     Active Substance: CLONAZEPAM
     Indication: SCHIZOPHRENIA
     Dosage: 2 MILLIGRAM, 3 TIMES A DAY
     Route: 048
  2. DIVALPROEX [Suspect]
     Active Substance: DIVALPROEX SODIUM
     Indication: MENTAL DISORDER
     Dosage: CHRONIC THERAPY
     Route: 065
  3. TRAZODONE [Concomitant]
     Active Substance: TRAZODONE HYDROCHLORIDE
     Indication: SCHIZOPHRENIA
     Dosage: 300 MILLIGRAM, ONCE A DAY,AT BEDTIME
     Route: 048
  4. LISINOPRIL. [Concomitant]
     Active Substance: LISINOPRIL
     Indication: HYPERTENSION
     Dosage: 5 MILLIGRAM, ONCE A DAY
     Route: 048
  5. DIVALPROEX [Suspect]
     Active Substance: DIVALPROEX SODIUM
     Indication: SCHIZOPHRENIA
     Dosage: 500 MILLIGRAM, 3 TIMES A DAY,DELAYED-RELEASE, CHRONIC THERAPY
     Route: 048
  6. OLANZAPINE. [Concomitant]
     Active Substance: OLANZAPINE
     Indication: SCHIZOPHRENIA
     Dosage: 20 MILLIGRAM, TWO TIMES A DAY
     Route: 048
  7. CHLORPROMAZINE. [Concomitant]
     Active Substance: CHLORPROMAZINE
     Indication: SCHIZOPHRENIA
     Dosage: 100 MILLIGRAM, TWO TIMES A DAY
     Route: 048
  8. MEMANTINE. [Concomitant]
     Active Substance: MEMANTINE
     Indication: PRODUCT USED FOR UNKNOWN INDICATION
     Dosage: 10 MILLIGRAM, TWO TIMES A DAY
     Route: 048
  9. DEPACON [Suspect]
     Active Substance: VALPROATE SODIUM
     Indication: SCHIZOPHRENIA
     Dosage: 500 MILLIGRAM, TWO TIMES A DAY
     Route: 042

REACTIONS (5)
  - Drug-induced liver injury [Unknown]
  - Rhabdomyolysis [Unknown]
  - Hepatic steatosis [Recovered/Resolved]
  - Hepatic function abnormal [Recovered/Resolved]
  - Acute kidney injury [Recovering/Resolving]
